FAERS Safety Report 10087180 (Version 3)
Quarter: 2014Q2

REPORT INFORMATION
  Report Type: Spontaneous
  Country: GB (occurrence: GB)
  Receive Date: 20140418
  Receipt Date: 20140528
  Transmission Date: 20141212
  Serious: Yes (Other)
  Sender: FDA-Public Use
  Company Number: GB-ALLERGAN-1405403US

PATIENT
  Age: 79 Year
  Sex: Female

DRUGS (2)
  1. OZURDEX [Suspect]
     Indication: RETINAL VEIN OCCLUSION
     Dosage: 0.7 MG, SINGLE
     Route: 031
     Dates: start: 20140227, end: 20140227
  2. OZURDEX [Suspect]
     Dosage: 0.7 MG, SINGLE
     Route: 031
     Dates: start: 20140227, end: 20140227

REACTIONS (1)
  - Foreign body in eye [Unknown]
